FAERS Safety Report 6442675-1 (Version None)
Quarter: 2009Q4

REPORT INFORMATION
  Report Type: 
  Country: None (occurrence: None)
  Receive Date: 20091117
  Receipt Date: 20091113
  Transmission Date: 20100525
  Serious: Yes (Life-Threatening)
  Sender: FDA-Public Use
  Company Number: US-ASTRAZENECA-2009SE26317

PATIENT
  Sex: Female
  Weight: 77.6 kg

DRUGS (4)
  1. SYMBICORT [Suspect]
     Route: 055
  2. ALBUTURAL [Concomitant]
  3. I LYSINE [Concomitant]
  4. VITAMIN TAB [Concomitant]

REACTIONS (3)
  - CHEST PAIN [None]
  - HYPERTENSION [None]
  - PALPITATIONS [None]
